FAERS Safety Report 5097615-7 (Version None)
Quarter: 2006Q3

REPORT INFORMATION
  Report Type: 
  Country: None (occurrence: None)
  Receive Date: 20060901
  Receipt Date: 20060822
  Transmission Date: 20061208
  Serious: Yes (Death, Life-Threatening, Disabling)
  Sender: FDA-Public Use
  Company Number: HQWYE924124AUG06

PATIENT
  Age: 30 Year
  Sex: Male

DRUGS (18)
  1. MYLOTARG [Suspect]
     Indication: ACUTE MYELOID LEUKAEMIA
     Dosage: 9 MG/M^2 1X PER 1 DAY INTRAVENOUS DRIP; SEE IMAGE
     Route: 041
     Dates: start: 20060524, end: 20060524
  2. MYLOTARG [Suspect]
     Indication: ACUTE MYELOID LEUKAEMIA
     Dosage: 9 MG/M^2 1X PER 1 DAY INTRAVENOUS DRIP; SEE IMAGE
     Route: 041
     Dates: start: 20060614, end: 20060614
  3. DIFLUCAN [Concomitant]
  4. AMLODIPINE BESYLATE [Concomitant]
  5. FAMOTIDINE [Concomitant]
  6. SULFAMETHOXAZOLE + TRIMETHOPRIM [Concomitant]
  7. PREDNISOLONE [Concomitant]
  8. LOSARTAN POTASSIUM [Concomitant]
  9. LASIX [Concomitant]
  10. URSO 250 [Concomitant]
  11. MAGNESIUM OXIDE [Concomitant]
  12. EBRANTIL (URAPIDIL) [Concomitant]
  13. BESACOLIN (BETHANECHOL CHLORIDE) [Concomitant]
  14. IMMUNE GLOBULIN INTRAVENOUS (HUMAN) [Concomitant]
  15. FIRSTCIN (CEFOZOPRAN HYDROCHLORIDE) [Concomitant]
  16. MEROPEN (MEROPENEM) [Concomitant]
  17. CLINDAMYCIN PHOSPHATE [Concomitant]
  18. MAXIPIME [Concomitant]

REACTIONS (13)
  - ACUTE MYELOID LEUKAEMIA [None]
  - ANAEMIA [None]
  - BLOOD CREATININE INCREASED [None]
  - BLOOD POTASSIUM INCREASED [None]
  - BLOOD UREA INCREASED [None]
  - CYSTITIS HAEMORRHAGIC [None]
  - MALIGNANT NEOPLASM PROGRESSION [None]
  - MOUTH HAEMORRHAGE [None]
  - PLATELET COUNT DECREASED [None]
  - POSTRENAL FAILURE [None]
  - RETINAL HAEMORRHAGE [None]
  - SEPSIS [None]
  - WHITE BLOOD CELL COUNT DECREASED [None]
